FAERS Safety Report 9368700 (Version 1)
Quarter: 2013Q2

REPORT INFORMATION
  Report Type: Spontaneous
  Country: AU (occurrence: AU)
  Receive Date: 20130626
  Receipt Date: 20130626
  Transmission Date: 20140414
  Serious: Yes (Other)
  Sender: FDA-Public Use
  Company Number: AU-ROCHE-1240979

PATIENT
  Age: 97 Year
  Sex: Male

DRUGS (2)
  1. LUCENTIS [Suspect]
     Indication: AGE-RELATED MACULAR DEGENERATION
     Route: 065
  2. AFLIBERCEPT [Concomitant]

REACTIONS (2)
  - Visual acuity reduced [Unknown]
  - Retinal haemorrhage [Unknown]
